FAERS Safety Report 21474134 (Version 1)
Quarter: 2022Q4

REPORT INFORMATION
  Report Type: Spontaneous
  Country: CR (occurrence: CR)
  Receive Date: 20221018
  Receipt Date: 20221018
  Transmission Date: 20230113
  Serious: Yes (Other)
  Sender: FDA-Public Use
  Company Number: CR-BAYER-2022P006562

PATIENT
  Sex: Female

DRUGS (1)
  1. MIRENA [Suspect]
     Active Substance: LEVONORGESTREL
     Dosage: 20?G/DAY
     Route: 015
     Dates: end: 20220629

REACTIONS (3)
  - Embedded device [Recovered/Resolved]
  - Device breakage [None]
  - Device difficult to use [Recovered/Resolved]

NARRATIVE: CASE EVENT DATE: 20220628
